FAERS Safety Report 18777934 (Version 2)
Quarter: 2021Q1

REPORT INFORMATION
  Report Type: Report from Study
  Country: GB (occurrence: GB)
  Receive Date: 20210122
  Receipt Date: 20210203
  Transmission Date: 20210419
  Serious: Yes (Other)
  Sender: FDA-Public Use
  Company Number: GB-JNJFOC-20210132065

PATIENT
  Sex: Female

DRUGS (4)
  1. STELARA [Suspect]
     Active Substance: USTEKINUMAB
     Indication: PSORIASIS
     Route: 058
     Dates: start: 201401
  2. SIMVASTATIN. [Concomitant]
     Active Substance: SIMVASTATIN
  3. STELARA [Suspect]
     Active Substance: USTEKINUMAB
  4. ASPIRINE [Concomitant]
     Active Substance: ASPIRIN

REACTIONS (1)
  - Lower respiratory tract infection [Recovered/Resolved]
